FAERS Safety Report 8447847-2 (Version None)
Quarter: 2012Q2

REPORT INFORMATION
  Report Type: 
  Country: None (occurrence: None)
  Receive Date: 20120619
  Receipt Date: 20120614
  Transmission Date: 20120825
  Serious: Yes (Other)
  Sender: FDA-Public Use
  Company Number: ES-PFIZER INC-2012144768

PATIENT
  Sex: Female

DRUGS (1)
  1. ADRENALIN IN OIL INJ [Suspect]

REACTIONS (1)
  - CEREBRAL VASOCONSTRICTION [None]
